FAERS Safety Report 13541031 (Version 1)
Quarter: 2017Q2

REPORT INFORMATION
  Report Type: Spontaneous
  Country: US (occurrence: US)
  Receive Date: 20170512
  Receipt Date: 20170512
  Transmission Date: 20170830
  Serious: Yes (Hospitalization)
  Sender: FDA-Public Use
  Company Number: US-JNJFOC-20170508877

PATIENT
  Sex: Male
  Weight: 100.25 kg

DRUGS (3)
  1. VICTOZA [Suspect]
     Active Substance: LIRAGLUTIDE
     Indication: TYPE 2 DIABETES MELLITUS
     Dosage: STARTED BEFORE 2015
     Route: 058
     Dates: end: 2016
  2. INVOKANA [Suspect]
     Active Substance: CANAGLIFLOZIN
     Indication: TYPE 2 DIABETES MELLITUS
     Route: 065
     Dates: start: 201409, end: 201501
  3. VICTOZA [Suspect]
     Active Substance: LIRAGLUTIDE
     Indication: TYPE 2 DIABETES MELLITUS
     Route: 058
     Dates: start: 201703

REACTIONS (4)
  - Blood glucose increased [Not Recovered/Not Resolved]
  - Blood potassium increased [Unknown]
  - Urinary retention [Recovering/Resolving]
  - Prostatic obstruction [Unknown]

NARRATIVE: CASE EVENT DATE: 2015
